FAERS Safety Report 9731971 (Version 1)
Quarter: 2013Q4

REPORT INFORMATION
  Report Type: Other
  Country: US (occurrence: US)
  Receive Date: 20131205
  Receipt Date: 20131205
  Transmission Date: 20140711
  Serious: No
  Sender: FDA-Public Use
  Company Number: US-ENDO PHARMACEUTICALS INC.-METO20120153

PATIENT
  Sex: Female

DRUGS (4)
  1. METOCLOPRAMIDE HYDROCHLORIDE [Suspect]
     Indication: NAUSEA
     Dosage: UNKNOWN
     Route: 048
  2. METOCLOPRAMIDE HYDROCHLORIDE [Suspect]
     Indication: ABDOMINAL PAIN
  3. METOCLOPRAMIDE HYDROCHLORIDE [Suspect]
     Indication: ABDOMINAL DISTENSION
  4. METOCLOPRAMIDE HYDROCHLORIDE [Suspect]
     Indication: DYSPEPSIA

REACTIONS (2)
  - Tardive dyskinesia [Not Recovered/Not Resolved]
  - Incorrect drug administration duration [Not Recovered/Not Resolved]
